FAERS Safety Report 9306797 (Version 1)
Quarter: 2013Q2

REPORT INFORMATION
  Report Type: Spontaneous
  Country: CA (occurrence: CA)
  Receive Date: 20130523
  Receipt Date: 20130523
  Transmission Date: 20140414
  Serious: Yes (Life-Threatening, Other)
  Sender: FDA-Public Use
  Company Number: CA-TEVA-407367USA

PATIENT
  Sex: 0

DRUGS (1)
  1. CEFALEXIN [Suspect]
     Dosage: 1500 MILLIGRAM DAILY;
     Route: 065

REACTIONS (5)
  - Auricular swelling [Recovered/Resolved]
  - Dizziness [Recovered/Resolved]
  - Lip swelling [Recovered/Resolved]
  - Oropharyngeal pain [Recovered/Resolved]
  - Urticaria [Recovered/Resolved]
